FAERS Safety Report 13763496 (Version 5)
Quarter: 2018Q3

REPORT INFORMATION
  Report Type: Spontaneous
  Country: BR (occurrence: BR)
  Receive Date: 20170718
  Receipt Date: 20180822
  Transmission Date: 20181010
  Serious: Yes (Other)
  Sender: FDA-Public Use
  Company Number: BR-GLAXOSMITHKLINE-BR2016GSK094878

PATIENT
  Sex: Female
  Weight: 117 kg

DRUGS (3)
  1. BENLYSTA [Suspect]
     Active Substance: BELIMUMAB
     Dosage: UNK
     Dates: start: 20170215
  2. BENLYSTA [Suspect]
     Active Substance: BELIMUMAB
     Dosage: UNK
     Dates: start: 20170725
  3. BENLYSTA [Suspect]
     Active Substance: BELIMUMAB
     Indication: SYSTEMIC LUPUS ERYTHEMATOSUS
     Dosage: UNK
     Dates: start: 20140902

REACTIONS (17)
  - Circumstance or information capable of leading to medication error [Recovered/Resolved]
  - Dysphagia [Unknown]
  - Pharyngeal paraesthesia [Unknown]
  - Product availability issue [Unknown]
  - Drug hypersensitivity [Recovered/Resolved]
  - Skin disorder [Unknown]
  - Inappropriate schedule of drug administration [Recovered/Resolved]
  - Drug dose omission [Not Recovered/Not Resolved]
  - Paraesthesia oral [Unknown]
  - Rash [Unknown]
  - Pharyngeal oedema [Unknown]
  - Swelling face [Unknown]
  - Hypersensitivity [Not Recovered/Not Resolved]
  - Rash macular [Unknown]
  - Sudden hearing loss [Unknown]
  - Dyspnoea [Unknown]
  - Erythema [Unknown]
